FAERS Safety Report 5639396-1 (Version None)
Quarter: 2008Q1

REPORT INFORMATION
  Report Type: 
  Country: None (occurrence: None)
  Receive Date: 20080226
  Receipt Date: 20080215
  Transmission Date: 20080703
  Serious: Yes (Hospitalization, Other)
  Sender: FDA-Public Use
  Company Number: JP-PFIZER INC-2008014540

PATIENT
  Sex: Female
  Weight: 59.2 kg

DRUGS (3)
  1. SU-011,248 [Suspect]
     Indication: GASTRIC CANCER
     Route: 048
     Dates: start: 20071001, end: 20080214
  2. TEGAFUR/GIMERACIL/OTERACIL POTASSIUM [Suspect]
     Indication: GASTRIC CANCER
     Route: 048
     Dates: start: 20071001, end: 20080214
  3. CISPLATIN [Suspect]
     Indication: GASTRIC CANCER
     Route: 042
     Dates: start: 20071001, end: 20080206

REACTIONS (1)
  - CEREBRAL INFARCTION [None]
